FAERS Safety Report 7768216-4 (Version None)
Quarter: 2011Q3

REPORT INFORMATION
  Report Type: 
  Country: None (occurrence: None)
  Receive Date: 20110922
  Receipt Date: 20110922
  Transmission Date: 20111222
  Serious: Yes (Life-Threatening, Hospitalization, Other)
  Sender: FDA-Public Use
  Company Number: None

PATIENT
  Sex: Male
  Weight: 104.32 kg

DRUGS (1)
  1. ANDROGEL [Suspect]
     Indication: BLOOD TESTOSTERONE DECREASED
     Dosage: 6 PUMPS OF GEL
     Route: 062
     Dates: start: 20110821, end: 20110910

REACTIONS (8)
  - MENTAL IMPAIRMENT [None]
  - HORMONE LEVEL ABNORMAL [None]
  - AGITATION [None]
  - ANGER [None]
  - LOSS OF CONSCIOUSNESS [None]
  - ADVERSE DRUG REACTION [None]
  - SUICIDE ATTEMPT [None]
  - SELF INJURIOUS BEHAVIOUR [None]
